FAERS Safety Report 7834298-4 (Version None)
Quarter: 2011Q4

REPORT INFORMATION
  Report Type: 
  Country: None (occurrence: None)
  Receive Date: 20111024
  Receipt Date: 20111019
  Transmission Date: 20120403
  Serious: Yes (Other)
  Sender: FDA-Public Use
  Company Number: US-BAYER-2011-101706

PATIENT
  Age: 58 Year
  Sex: Female
  Weight: 68 kg

DRUGS (4)
  1. COD-LIVER OIL [Concomitant]
  2. VITAMIN B COMPLEX CAP [Concomitant]
  3. ASPIRIN [Suspect]
     Indication: HEADACHE
     Dosage: 1 DF, ONCE
     Route: 048
  4. VITAMIN D [Concomitant]

REACTIONS (2)
  - CHOKING [None]
  - DYSPHAGIA [None]
